FAERS Safety Report 4267197-8 (Version None)
Quarter: 2004Q1

REPORT INFORMATION
  Report Type: 
  Country: None (occurrence: None)
  Receive Date: 20040108
  Receipt Date: 20040108
  Transmission Date: 20041129
  Serious: Yes (Life-Threatening, Hospitalization)
  Sender: FDA-Public Use
  Company Number: None

PATIENT
  Sex: Female
  Weight: 59.1 kg

DRUGS (1)
  1. ISOVUE-370 [Suspect]
     Indication: ARTERIOGRAM CORONARY
     Dosage: 2-5 ML IC
     Dates: start: 20031215

REACTIONS (1)
  - CORONARY ARTERY THROMBOSIS [None]
